FAERS Safety Report 16860780 (Version 2)
Quarter: 2019Q4

REPORT INFORMATION
  Report Type: Report from Study
  Country: US (occurrence: US)
  Receive Date: 20190927
  Receipt Date: 20191028
  Transmission Date: 20200122
  Serious: Yes (Other)
  Sender: FDA-Public Use
  Company Number: US-JNJFOC-20190934481

PATIENT
  Sex: Male

DRUGS (19)
  1. VENLAFAXINE HCL [Concomitant]
     Active Substance: VENLAFAXINE HYDROCHLORIDE
  2. PROAIR HFA [Concomitant]
     Active Substance: ALBUTEROL SULFATE
  3. VITAMIN B6 [Concomitant]
     Active Substance: PYRIDOXINE HYDROCHLORIDE
  4. LYRICA [Concomitant]
     Active Substance: PREGABALIN
  5. PREDNISONE. [Concomitant]
     Active Substance: PREDNISONE
  6. NOVOLOG [Concomitant]
     Active Substance: INSULIN ASPART
  7. IMBRUVICA [Suspect]
     Active Substance: IBRUTINIB
     Indication: DIFFUSE LARGE B-CELL LYMPHOMA
     Dosage: 560 MG, QD
     Route: 048
     Dates: start: 20180330, end: 20181109
  8. BACTRIM DS [Concomitant]
     Active Substance: SULFAMETHOXAZOLE\TRIMETHOPRIM
  9. IMBRUVICA [Suspect]
     Active Substance: IBRUTINIB
     Dosage: 140 MG, QD
     Route: 048
     Dates: start: 20181110
  10. VITAMIN B12 [Concomitant]
     Active Substance: CYANOCOBALAMIN
  11. METOPROLOL TARTRATE. [Concomitant]
     Active Substance: METOPROLOL TARTRATE
  12. ALBUTEROL SULFATE. [Concomitant]
     Active Substance: ALBUTEROL SULFATE
  13. TRAMADOL HYDROCHLORIDE. [Concomitant]
     Active Substance: TRAMADOL HYDROCHLORIDE
  14. MUCINEX [Concomitant]
     Active Substance: GUAIFENESIN
  15. ACIDOPHILUS [Concomitant]
     Active Substance: LACTOBACILLUS ACIDOPHILUS
  16. VITAMIN B12 [Concomitant]
     Active Substance: CYANOCOBALAMIN
  17. MAGNESIUM OXIDE. [Concomitant]
     Active Substance: MAGNESIUM OXIDE
  18. OMEPRAZOLE. [Concomitant]
     Active Substance: OMEPRAZOLE
  19. VITAMIN D NOS [Concomitant]
     Active Substance: VITAMIN D NOS
     Dosage: 1000

REACTIONS (1)
  - Pulmonary congestion [Unknown]
